FAERS Safety Report 13397133 (Version 1)
Quarter: 2017Q2

REPORT INFORMATION
  Report Type: Spontaneous
  Country: US (occurrence: US)
  Receive Date: 20170403
  Receipt Date: 20170403
  Transmission Date: 20170830
  Serious: Yes (Hospitalization)
  Sender: FDA-Public Use
  Company Number: US-INSYS THERAPEUTICS, INC-INS201703-000228

PATIENT
  Age: 23 Year
  Sex: Male

DRUGS (8)
  1. FENTANYL. [Suspect]
     Active Substance: FENTANYL
     Indication: PRODUCT USED FOR UNKNOWN INDICATION
  2. GALANTAMINE. [Suspect]
     Active Substance: GALANTAMINE
  3. OXYCODONE [Suspect]
     Active Substance: OXYCODONE
  4. QUININE [Suspect]
     Active Substance: QUININE
  5. COCAINE METABOLITES [Suspect]
     Active Substance: COCAINE
  6. NALOXONE [Concomitant]
     Active Substance: NALOXONE
  7. CODEINE [Suspect]
     Active Substance: CODEINE
  8. DIPHENHYDRAMINE. [Suspect]
     Active Substance: DIPHENHYDRAMINE

REACTIONS (11)
  - Hyperhidrosis [None]
  - Toxicity to various agents [Recovering/Resolving]
  - Overdose [Recovering/Resolving]
  - Compartment syndrome [Recovering/Resolving]
  - Sinus tachycardia [Recovering/Resolving]
  - Agitation [None]
  - Haemodialysis [None]
  - Increased bronchial secretion [None]
  - Miosis [None]
  - Unresponsive to stimuli [None]
  - Renal failure [Recovering/Resolving]
